FAERS Safety Report 9506541 (Version 1)
Quarter: 2013Q1

REPORT INFORMATION
  Report Type: Spontaneous
  Country: US (occurrence: None)
  Receive Date: 20130305
  Receipt Date: 20130305
  Transmission Date: 20140127
  Serious: Yes (Hospitalization)
  Sender: FDA-Public Use
  Company Number: 163-21880-12111263

PATIENT
  Age: 74 Year
  Sex: Male

DRUGS (18)
  1. NIACIN (NICOTINIC ACID) [Concomitant]
  2. PANTOPRAZOLE SODIUM [Concomitant]
  3. REVLIMID [Suspect]
     Indication: PLASMA CELL MYELOMA
     Dosage: 11.25 MG, 21 IN 28 D, PO
     Dates: start: 20121017
  4. ALOXI (PALONOSETRON HYDROCHLORIDE) (UNKNOWN) [Concomitant]
  5. AMIODARONE HCL (AMIODARONE HYDROCHLORIDE) (UNKNOWN) [Concomitant]
  6. ATORVASTATIN CALCIUM (ATORVASTATIN CALCIUM) (TABLETS) [Concomitant]
  7. BABY ASPIRIN (ACETYLSALICYLIC ACID) (TABLETS) [Concomitant]
  8. CALCIUM [Concomitant]
  9. CLONIDINE HCL (CLONIDINE HYDROCHLORIDE) INJECTION [Concomitant]
  10. COUMADIN (WARFARIN SODIUM) [Concomitant]
  11. DILTIAZEM 24HR ER (DILTIAZEM HYDROCHLORIDE) (TABLETS) [Concomitant]
  12. FLOMAX (TAMSULOSIN HYDROCHLORIDE) [Concomitant]
  13. LASIX (FUROSEMIDE) [Concomitant]
  14. VELCADE (BORTEZOMIB) [Concomitant]
  15. CALCIUM ACETATE [Concomitant]
  16. FERROUS SULFATE [Concomitant]
  17. KLOR-CON M20 (POTASSIUM CHLORIDE) [Concomitant]
  18. MAG-OXIDE [Concomitant]

REACTIONS (4)
  - Atrial fibrillation [None]
  - Orthostatic hypotension [None]
  - Heart rate increased [None]
  - Malaise [None]
